FAERS Safety Report 4357904-8 (Version None)
Quarter: 2004Q2

REPORT INFORMATION
  Report Type: 
  Country: None (occurrence: None)
  Receive Date: 20040514
  Receipt Date: 20040504
  Transmission Date: 20050107
  Serious: Yes (Hospitalization)
  Sender: FDA-Public Use
  Company Number: PHEH2004US04898

PATIENT
  Age: 86 Year
  Sex: Female

DRUGS (8)
  1. MIACALCIN [Suspect]
     Indication: OSTEOPOROSIS
     Dosage: UNK, QOD
     Route: 058
  2. SYNTHROID [Concomitant]
     Dosage: 200 MG, QOD
  3. PLAVIX [Concomitant]
  4. THORAZINE [Concomitant]
  5. PROTONIX [Concomitant]
  6. ALLEGRA [Concomitant]
  7. LEVAQUIN [Concomitant]
  8. PHENERGAN [Concomitant]

REACTIONS (2)
  - BLOOD CALCIUM DECREASED [None]
  - TREMOR [None]
